FAERS Safety Report 9852181 (Version 1)
Quarter: 2014Q1

REPORT INFORMATION
  Report Type: Spontaneous
  Country: US (occurrence: US)
  Receive Date: 20140129
  Receipt Date: 20140129
  Transmission Date: 20141002
  Serious: Yes (Other)
  Sender: FDA-Public Use
  Company Number: US-BRACCO-009340

PATIENT
  Age: 39 Year
  Sex: Female

DRUGS (3)
  1. VALIUM [Concomitant]
  2. ALL OTHER THERAPEUTIC PRODUCTS [Concomitant]
  3. MULTIHANCE [Suspect]
     Indication: NUCLEAR MAGNETIC RESONANCE IMAGING BRAIN
     Route: 042
     Dates: start: 20130405, end: 20130405

REACTIONS (2)
  - Psychogenic seizure [Recovered/Resolved]
  - Hypersensitivity [Recovered/Resolved]
